FAERS Safety Report 6179902-4 (Version None)
Quarter: 2009Q2

REPORT INFORMATION
  Report Type: 
  Country: None (occurrence: None)
  Receive Date: 20090505
  Receipt Date: 20090429
  Transmission Date: 20091009
  Serious: Yes (Death)
  Sender: FDA-Public Use
  Company Number: US-ABBOTT-09P-163-0569699-00

PATIENT
  Age: 54 Year
  Sex: Male

DRUGS (1)
  1. KALETRA [Suspect]
     Indication: HIV INFECTION
     Route: 048
     Dates: start: 20020301, end: 20090413

REACTIONS (1)
  - HEPATIC NEOPLASM MALIGNANT [None]
